FAERS Safety Report 16074255 (Version 2)
Quarter: 2019Q1

REPORT INFORMATION
  Report Type: Report from Study
  Country: ES (occurrence: ES)
  Receive Date: 20190314
  Receipt Date: 20190325
  Transmission Date: 20190418
  Serious: Yes (Other)
  Sender: FDA-Public Use
  Company Number: PHHY2019ES054494

PATIENT
  Age: 53 Year
  Sex: Male
  Weight: 70 kg

DRUGS (7)
  1. CYTARABINE. [Suspect]
     Active Substance: CYTARABINE
     Indication: ACUTE MYELOID LEUKAEMIA
     Dosage: 200 MG/M2, UNK
     Route: 065
     Dates: start: 20190109
  2. IDARUBICINE [Suspect]
     Active Substance: IDARUBICIN
     Indication: ACUTE MYELOID LEUKAEMIA
     Dosage: 12 MG/M2, UNK
     Route: 065
     Dates: start: 20190109
  3. CYTARABINE. [Suspect]
     Active Substance: CYTARABINE
     Dosage: 200 MG/M2, UNK
     Route: 065
     Dates: start: 20190115
  4. PKC412 [Suspect]
     Active Substance: MIDOSTAURIN
     Indication: ACUTE MYELOID LEUKAEMIA
     Dosage: 50 MG, BID
     Route: 048
     Dates: start: 20190116, end: 20190129
  5. IDARUBICINE [Suspect]
     Active Substance: IDARUBICIN
     Dosage: 12 MG/M2, UNK
     Route: 065
     Dates: start: 20190111
  6. ISAVUCONAZOLE [Suspect]
     Active Substance: ISAVUCONAZOLE
     Dosage: 200 MG, QD
     Route: 065
     Dates: start: 20190222
  7. ISAVUCONAZOLE [Suspect]
     Active Substance: ISAVUCONAZOLE
     Indication: PNEUMONIA
     Dosage: 200 MG, QD
     Route: 065
     Dates: start: 20190122

REACTIONS (1)
  - Gamma-glutamyltransferase increased [Recovering/Resolving]

NARRATIVE: CASE EVENT DATE: 20190125
